FAERS Safety Report 4883020-2 (Version None)
Quarter: 2006Q1

REPORT INFORMATION
  Report Type: 
  Country: None (occurrence: None)
  Receive Date: 20060118
  Receipt Date: 20051227
  Transmission Date: 20060701
  Serious: Yes (Hospitalization)
  Sender: FDA-Public Use
  Company Number: FR-ABBOTT-05P-056-0320791-00

PATIENT
  Sex: Female

DRUGS (1)
  1. DEPAKINE CHRONO TABLETS [Suspect]
     Indication: GRAND MAL CONVULSION
     Route: 048
     Dates: start: 19980101

REACTIONS (1)
  - CALCIFICATION OF MUSCLE [None]
